FAERS Safety Report 8172256 (Version 2)
Quarter: 2014Q2

REPORT INFORMATION
  Report Type: Spontaneous
  Country: JP (occurrence: JP)
  Receive Date: 20111007
  Receipt Date: 20140623
  Transmission Date: 20141212
  Serious: Yes (Hospitalization, Other)
  Sender: FDA-Public Use
  Company Number: JP-PFIZER INC-2011237051

PATIENT
  Age: 18 Year
  Sex: Male
  Weight: 49 kg

DRUGS (3)
  1. METHYLPREDNISOLONE SODIUM SUCCINATE [Suspect]
     Indication: ACUTE RESPIRATORY DISTRESS SYNDROME
     Dosage: 1 G, DAILY FOR 3 DAYS
     Route: 042
  2. VANCOMYCIN [Suspect]
     Indication: FEBRILE NEUTROPENIA
     Dosage: UNK
  3. MICAFUNGIN [Concomitant]
     Indication: FEBRILE NEUTROPENIA
     Dosage: UNK

REACTIONS (3)
  - Pancreatitis acute [Recovered/Resolved]
  - Posterior reversible encephalopathy syndrome [Recovered/Resolved]
  - Renal failure acute [Recovered/Resolved]
